FAERS Safety Report 13042305 (Version 1)
Quarter: 2016Q4

REPORT INFORMATION
  Report Type: Spontaneous
  Country: CH (occurrence: CH)
  Receive Date: 20161219
  Receipt Date: 20161219
  Transmission Date: 20170207
  Serious: Yes (Death)
  Sender: FDA-Public Use
  Company Number: CH-009507513-1612CHE007188

PATIENT
  Age: 69 Year
  Sex: Female
  Weight: 57.2 kg

DRUGS (25)
  1. MAGNESIOCARD [Concomitant]
     Active Substance: MAGNESIUM ASPARTATE HYDROCHLORIDE
     Dosage: 10 MMOL, BID
  2. WILD VI DE 3 [Concomitant]
     Dosage: 10 GTT, QD
     Dates: start: 20161124, end: 20161124
  3. PASPERTIN [Concomitant]
     Active Substance: METOCLOPRAMIDE HYDROCHLORIDE
  4. MINOCIN [Suspect]
     Active Substance: MINOCYCLINE HYDROCHLORIDE
     Dosage: 50 MG, BID
     Dates: start: 20161123, end: 20161124
  5. ESOMEP [Suspect]
     Active Substance: ESOMEPRAZOLE
     Dosage: 40 MG, QD
     Route: 048
     Dates: start: 20161117, end: 20161124
  6. OXYNORM [Suspect]
     Active Substance: OXYCODONE HYDROCHLORIDE
  7. LAXOBERON [Concomitant]
     Active Substance: SODIUM PICOSULFATE
     Dates: start: 20161114, end: 20161124
  8. CIPROXIN (CIPROFLOXACIN HYDROCHLORIDE) (FILM-COATED TABLET) (CIPROFLOXACIN HYDROCHLORIDE) [Suspect]
     Active Substance: CIPROFLOXACIN
     Dosage: 250 MG, BID
     Dates: start: 20161124, end: 20161125
  9. EXFORGE HCT [Concomitant]
     Active Substance: AMLODIPINE BESYLATE\HYDROCHLOROTHIAZIDE\VALSARTAN
     Dosage: UNK UNK, QD
     Dates: end: 20161012
  10. MOVICOL [Concomitant]
     Active Substance: POLYETHYLENE GLYCOL 3350\POTASSIUM CHLORIDE\SODIUM BICARBONATE\SODIUM CHLORIDE
     Dosage: UNK, QD
  11. NOVALGIN (DIPYRONE) [Concomitant]
     Active Substance: DIPYRONE
     Dosage: 40 GTT, QID
  12. INVANZ [Suspect]
     Active Substance: ERTAPENEM SODIUM
     Dosage: 1000 MG
     Dates: start: 20161115, end: 20161115
  13. ERBITUX [Suspect]
     Active Substance: CETUXIMAB
     Dosage: 400 MG, UNK
     Route: 041
     Dates: start: 20161123, end: 20161123
  14. ATENOLOL. [Concomitant]
     Active Substance: ATENOLOL
     Dosage: 100 MG, QD
     Dates: end: 20161012
  15. COCAINE [Concomitant]
     Active Substance: COCAINE
     Dosage: UNK UNK, TID
     Route: 002
  16. PANTOZOL [Suspect]
     Active Substance: PANTOPRAZOLE SODIUM
     Dates: start: 20161115, end: 20161116
  17. TARGIN [Concomitant]
     Active Substance: NALOXONE HYDROCHLORIDE\OXYCODONE HYDROCHLORIDE
     Dates: end: 20161115
  18. TAVEGYL [Concomitant]
     Active Substance: CLEMASTINE FUMARATE
     Dates: start: 20161123, end: 20161123
  19. DAFALGAN [Suspect]
     Active Substance: ACETAMINOPHEN
     Dates: start: 20161115, end: 20161116
  20. BEPANTHEN (DEXPANTHENOL) [Concomitant]
     Dosage: UNK UNK, TID
     Route: 002
  21. DUROGESIC [Concomitant]
     Active Substance: FENTANYL
     Dosage: UNK UNK, Q3D
     Route: 062
  22. FRAGMIN [Suspect]
     Active Substance: DALTEPARIN SODIUM
     Dosage: UNK UNK, QD
     Route: 058
     Dates: start: 20161118, end: 20161124
  23. ZOLPIDEM [Suspect]
     Active Substance: ZOLPIDEM\ZOLPIDEM TARTRATE
     Dates: start: 20161115, end: 20161124
  24. LYRICA [Concomitant]
     Active Substance: PREGABALIN
     Dosage: 75 MG, QD
     Dates: start: 20161123, end: 20161124
  25. MEPHAMESON [Concomitant]
     Active Substance: DEXAMETHASONE
     Dosage: 8 MG, UNK
     Dates: start: 20161123, end: 20161123

REACTIONS (5)
  - Coma [None]
  - Hypoglycaemia [None]
  - Acute hepatic failure [Fatal]
  - Urinary tract infection enterococcal [None]
  - Pneumonia [None]

NARRATIVE: CASE EVENT DATE: 20161125
